FAERS Safety Report 6801291-X (Version None)
Quarter: 2010Q2

REPORT INFORMATION
  Report Type: 
  Country: None (occurrence: None)
  Receive Date: 20100629
  Receipt Date: 20100623
  Transmission Date: 20101027
  Serious: Yes (Other)
  Sender: FDA-Public Use
  Company Number: JP-SANOFI-AVENTIS-2010SA026563

PATIENT
  Age: 33 Year
  Sex: Female

DRUGS (3)
  1. LASIX [Suspect]
     Indication: OEDEMA
     Dosage: ONCE OR TWICE A WEEK.
     Route: 048
     Dates: start: 20080704, end: 20100507
  2. LASIX [Suspect]
     Dosage: ONCE OR TWICE A WEEK.
     Route: 048
     Dates: start: 20080704, end: 20100507
  3. SLOW-K [Concomitant]
     Dates: start: 20080704, end: 20100507

REACTIONS (4)
  - DRUG EXPOSURE DURING PREGNANCY [None]
  - HYPOKALAEMIA [None]
  - OFF LABEL USE [None]
  - PSEUDO-BARTTER SYNDROME [None]
